FAERS Safety Report 7914089-6 (Version None)
Quarter: 2011Q4

REPORT INFORMATION
  Report Type: 
  Country: None (occurrence: None)
  Receive Date: 20111114
  Receipt Date: 20111114
  Transmission Date: 20120403
  Serious: Yes (Hospitalization)
  Sender: FDA-Public Use
  Company Number: None

PATIENT
  Sex: Male
  Weight: 53.75 kg

DRUGS (1)
  1. CISPLATIN [Suspect]
     Dosage: 170 MG
     Dates: end: 20081126

REACTIONS (3)
  - RENAL FAILURE ACUTE [None]
  - ANAEMIA [None]
  - HYPOTENSION [None]
